FAERS Safety Report 22795033 (Version 17)
Quarter: 2025Q3

REPORT INFORMATION
  Report Type: Spontaneous
  Country: US (occurrence: US)
  Receive Date: 20230807
  Receipt Date: 20250925
  Transmission Date: 20251021
  Serious: Yes (Disabling, Other)
  Sender: SANOFI AVENTIS
  Company Number: US-SA-SAC20230804000275

PATIENT
  Age: 44 Year
  Sex: Male

DRUGS (16)
  1. ALPROLIX [Suspect]
     Active Substance: EFTRENONACOG ALFA
     Indication: Haemorrhage
     Route: 042
  2. ALPROLIX [Suspect]
     Active Substance: EFTRENONACOG ALFA
     Indication: Haemorrhage
     Route: 042
  3. ALPROLIX [Suspect]
     Active Substance: EFTRENONACOG ALFA
     Indication: Prophylaxis
     Dosage: 4170/8340 UNITS, QW
     Route: 042
  4. ALPROLIX [Suspect]
     Active Substance: EFTRENONACOG ALFA
     Indication: Prophylaxis
     Dosage: 4170/8340 UNITS, QW
     Route: 042
  5. ALPROLIX [Suspect]
     Active Substance: EFTRENONACOG ALFA
     Indication: Factor IX deficiency
     Route: 042
  6. ALPROLIX [Suspect]
     Active Substance: EFTRENONACOG ALFA
     Indication: Factor IX deficiency
     Route: 042
  7. ALPROLIX [Suspect]
     Active Substance: EFTRENONACOG ALFA
     Dosage: 4170/8340 UNITS (+/-10%)
     Route: 042
  8. ALPROLIX [Suspect]
     Active Substance: EFTRENONACOG ALFA
     Dosage: 4170/8340 UNITS (+/-10%)
     Route: 042
  9. ALPROLIX [Suspect]
     Active Substance: EFTRENONACOG ALFA
     Dosage: 4295/8590 UNITS (+/- 10%), QW OR Q48 H PRN
     Route: 042
  10. ALPROLIX [Suspect]
     Active Substance: EFTRENONACOG ALFA
     Dosage: 4295/8590 UNITS (+/- 10%), QW OR Q48 H PRN
     Route: 042
  11. ALPROLIX [Suspect]
     Active Substance: EFTRENONACOG ALFA
     Dosage: 4120 (+/-10%)/8240 UNITS (+/-10%), QW
     Route: 042
  12. ALPROLIX [Suspect]
     Active Substance: EFTRENONACOG ALFA
     Dosage: 4120 (+/-10%)/8240 UNITS (+/-10%), QW
     Route: 042
  13. ALPROLIX [Suspect]
     Active Substance: EFTRENONACOG ALFA
     Dosage: 4295 U (3866-4724) QW AND QOD AS NEEDED FOR EARLY JOINT OR SOFT TISSUE BLEEDING EPISODES
     Route: 042
  14. ALPROLIX [Suspect]
     Active Substance: EFTRENONACOG ALFA
     Dosage: 4295 U (3866-4724) QW AND QOD AS NEEDED FOR EARLY JOINT OR SOFT TISSUE BLEEDING EPISODES
     Route: 042
  15. ALPROLIX [Suspect]
     Active Substance: EFTRENONACOG ALFA
     Route: 042
  16. ALPROLIX [Suspect]
     Active Substance: EFTRENONACOG ALFA
     Route: 042

REACTIONS (18)
  - Haemorrhage [Unknown]
  - Spontaneous haemorrhage [Recovered/Resolved]
  - Spontaneous haemorrhage [Unknown]
  - Haemorrhage [Unknown]
  - Haemorrhage [Unknown]
  - Haemorrhage [Recovering/Resolving]
  - Haemorrhage [Recovered/Resolved]
  - Haemorrhage [Unknown]
  - Haemorrhage [Recovered/Resolved]
  - Spontaneous haemorrhage [Recovered/Resolved]
  - Haemorrhage [Unknown]
  - Haemorrhage [Recovering/Resolving]
  - Haemorrhage [Unknown]
  - Haemorrhage [Recovered/Resolved]
  - Haemorrhage [Unknown]
  - Haemorrhage [Recovered/Resolved]
  - Haemorrhage [Recovered/Resolved]
  - Haemorrhage [Recovered/Resolved]

NARRATIVE: CASE EVENT DATE: 20230101
